FAERS Safety Report 23282353 (Version 1)
Quarter: 2023Q4

REPORT INFORMATION
  Report Type: Spontaneous
  Country: US (occurrence: US)
  Receive Date: 20231211
  Receipt Date: 20231211
  Transmission Date: 20240110
  Serious: No
  Sender: FDA-Public Use
  Company Number: US-INCYTE CORPORATION-2023IN012553

PATIENT

DRUGS (1)
  1. JAKAFI [Suspect]
     Active Substance: RUXOLITINIB
     Indication: Myelofibrosis
     Dosage: 10MG EVERY OTHER DAY ALTERNATING WITH 20MG
     Route: 048
     Dates: start: 20220413

REACTIONS (7)
  - Nasopharyngitis [Unknown]
  - Full blood count abnormal [Unknown]
  - Food refusal [Unknown]
  - Food craving [Unknown]
  - Memory impairment [Unknown]
  - Product communication issue [Unknown]
  - Dizziness [Unknown]
